FAERS Safety Report 18088949 (Version 3)
Quarter: 2020Q4

REPORT INFORMATION
  Report Type: Report from Study
  Country: None (occurrence: US)
  Receive Date: 20200729
  Receipt Date: 20201012
  Transmission Date: 20210113
  Serious: Yes (Hospitalization)
  Sender: FDA-Public Use
  Company Number: US-ABBVIE-20K-163-3499880-00

PATIENT
  Age: 76 Year
  Sex: Female
  Weight: 63.56 kg

DRUGS (2)
  1. GABAPENTIN. [Concomitant]
     Active Substance: GABAPENTIN
     Indication: NERVE INJURY
  2. CREON [Suspect]
     Active Substance: PANCRELIPASE AMYLASE\PANCRELIPASE LIPASE\PANCRELIPASE PROTEASE
     Indication: DIARRHOEA
     Dosage: 2 EACH MEALS X 3 MEALS A DAY
     Route: 048
     Dates: start: 202002

REACTIONS (6)
  - Skin laceration [Recovered/Resolved]
  - Off label use [Unknown]
  - Skin fissures [Not Recovered/Not Resolved]
  - Suture insertion [Recovered/Resolved]
  - Intentional product misuse [Unknown]
  - Fall [Recovering/Resolving]

NARRATIVE: CASE EVENT DATE: 2020
